FAERS Safety Report 6754605-3 (Version None)
Quarter: 2010Q2

REPORT INFORMATION
  Report Type: 
  Country: None (occurrence: None)
  Receive Date: 20100524
  Receipt Date: 20100331
  Transmission Date: 20101027
  Serious: No
  Sender: FDA-Public Use
  Company Number: 009565

PATIENT
  Sex: Female

DRUGS (1)
  1. CIMZIA [Suspect]
     Indication: CROHN'S DISEASE

REACTIONS (3)
  - FISTULA [None]
  - RECTAL HAEMORRHAGE [None]
  - VAGINAL HAEMORRHAGE [None]
